FAERS Safety Report 9819579 (Version 1)
Quarter: 2014Q1

REPORT INFORMATION
  Report Type: Spontaneous
  Country: US (occurrence: None)
  Receive Date: 20140113
  Receipt Date: 20140113
  Transmission Date: 20141002
  Serious: Yes (Hospitalization, Other)
  Sender: FDA-Public Use
  Company Number: 2013STPI000523

PATIENT
  Age: 16 Year
  Sex: Male

DRUGS (19)
  1. ONCASPAR [Suspect]
     Indication: ACUTE LYMPHOCYTIC LEUKAEMIA
     Route: 042
     Dates: start: 20130425, end: 20131223
  2. VINCRISTINE SULFATE [Suspect]
     Route: 042
     Dates: start: 20130422, end: 20131223
  3. DEXAMETHASONE [Suspect]
     Route: 048
     Dates: start: 20130930, end: 20130930
  4. MERCAPTOPURINE [Suspect]
     Route: 048
     Dates: start: 20130617, end: 20131225
  5. NEURTONIN (GABAPENTIN) [Concomitant]
  6. MORPHINE SULFATE (MORPHINE SULFATE) INJECTION [Concomitant]
  7. OXYCODONE (OXYCODONE HYDROCHLORIDE) (OXYCODONE) [Concomitant]
  8. BACTRIM (SULFAMETHOXAZOLE, TRIMETHOPRIM) [Concomitant]
  9. MICAFUNGIN (MICAFUNGIN) [Concomitant]
  10. LOVENOX (ENOXAPARIN SODIUM) [Concomitant]
  11. ENALAPRIL MALEATE (ENALAPRIL MALEATE) [Concomitant]
  12. CALCIUM CARBONATE (CALCIUM CARBONATE) (CALCIUM CARBONATE) [Concomitant]
  13. OMEPRAZOLE (OMEPRAZOLE) [Concomitant]
  14. HUMALOG (INSULIN LISPRO) [Concomitant]
  15. LANTUS (INSULIN GLARGINE) [Concomitant]
  16. ATIVAN (LORAZEPAM) [Concomitant]
  17. MELATONN (MELATONIN) [Concomitant]
  18. ZOFRAN (ONDANSETRON HYDROCHLORIDE) [Concomitant]
  19. DRONABINOL (DRONABINOL) [Concomitant]

REACTIONS (18)
  - Acidosis [None]
  - Pancreatitis [None]
  - Hyperglycaemia [None]
  - Systemic candida [None]
  - Sepsis [None]
  - Deep vein thrombosis [None]
  - Peripheral motor neuropathy [None]
  - Cardiomyopathy [None]
  - Abdominal pain [None]
  - Vomiting [None]
  - Mental status changes [None]
  - Cardio-respiratory arrest [None]
  - Hypotension [None]
  - Cholelithiasis [None]
  - Continuous haemodiafiltration [None]
  - Fluid overload [None]
  - Depressed level of consciousness [None]
  - Renal failure [None]
